FAERS Safety Report 13516872 (Version 5)
Quarter: 2017Q3

REPORT INFORMATION
  Report Type: Spontaneous
  Country: US (occurrence: US)
  Receive Date: 20170505
  Receipt Date: 20170825
  Transmission Date: 20171127
  Serious: No
  Sender: FDA-Public Use
  Company Number: US-PFIZER INC-2017192551

PATIENT
  Age: 48 Year
  Sex: Female

DRUGS (2)
  1. IBRANCE [Suspect]
     Active Substance: PALBOCICLIB
     Dosage: 125 MG, CYCLIC (1 PO DAILY FOR 21 DAYS, OFF 7 DAYS )
     Route: 048
     Dates: start: 20170417, end: 20170720
  2. IBRANCE [Suspect]
     Active Substance: PALBOCICLIB
     Dosage: 125 MG, UNK
     Dates: start: 20170512, end: 20170731

REACTIONS (3)
  - Nausea [Recovering/Resolving]
  - White blood cell count decreased [Not Recovered/Not Resolved]
  - Drug administration error [Unknown]
